FAERS Safety Report 21623071 (Version 2)
Quarter: 2022Q4

REPORT INFORMATION
  Report Type: Spontaneous
  Country: BR (occurrence: BR)
  Receive Date: 20221121
  Receipt Date: 20221124
  Transmission Date: 20230112
  Serious: Yes (Death, Hospitalization, Other)
  Sender: FDA-Public Use
  Company Number: BR-002147023-NVSC2022BR261544

PATIENT
  Age: 98 Year
  Sex: Female

DRUGS (3)
  1. EXELON [Suspect]
     Active Substance: RIVASTIGMINE TARTRATE
     Indication: Dementia Alzheimer^s type
     Dosage: 9.5 MG, QD (15 CM2) (10 YEARS AGO)
     Route: 062
     Dates: start: 2012
  2. EXELON [Suspect]
     Active Substance: RIVASTIGMINE TARTRATE
     Indication: Dementia
  3. XARELTO [Concomitant]
     Active Substance: RIVAROXABAN
     Indication: Thrombosis prophylaxis
     Dosage: 20 MG
     Route: 065

REACTIONS (14)
  - Pain in extremity [Fatal]
  - Acute respiratory failure [Fatal]
  - Altered state of consciousness [Fatal]
  - Pneumonia [Fatal]
  - Arthralgia [Unknown]
  - Cardiac arrest [Unknown]
  - Retinal detachment [Unknown]
  - Embolism [Unknown]
  - Thrombosis [Unknown]
  - Arrhythmia [Unknown]
  - Arthritis [Unknown]
  - Osteoarthritis [Unknown]
  - Hypertension [Unknown]
  - Off label use [Unknown]

NARRATIVE: CASE EVENT DATE: 20220405
